FAERS Safety Report 9938128 (Version 2)
Quarter: 2014Q1

REPORT INFORMATION
  Report Type: Spontaneous
  Country: US (occurrence: US)
  Receive Date: 20140303
  Receipt Date: 20140312
  Transmission Date: 20141002
  Serious: No
  Sender: FDA-Public Use
  Company Number: US-009507513-1402USA008292

PATIENT
  Age: 72 Year
  Sex: Female

DRUGS (1)
  1. DULERA [Suspect]
     Dosage: UNK, AS NEEDED
     Route: 055

REACTIONS (6)
  - Back injury [Unknown]
  - Drug dose omission [Unknown]
  - Inappropriate schedule of drug administration [Unknown]
  - Incorrect dose administered [Unknown]
  - Drug prescribing error [Unknown]
  - Product quality issue [Unknown]
